FAERS Safety Report 7344472-1 (Version None)
Quarter: 2011Q1

REPORT INFORMATION
  Report Type: 
  Country: None (occurrence: None)
  Receive Date: 20110310
  Receipt Date: 20110228
  Transmission Date: 20110831
  Serious: Yes (Other)
  Sender: FDA-Public Use
  Company Number: US-ROCHE-762414

PATIENT

DRUGS (5)
  1. BEVACIZUMAB [Suspect]
     Dosage: ADMINISTERED OVER 30-90 MINUTES.
     Route: 042
  2. CETUXIMAB [Suspect]
     Dosage: INITIAL DOSE OVER 120 MINUTES
     Route: 042
  3. CETUXIMAB [Suspect]
     Dosage: OVER 60 MINUTES ON DAY ONE OF EACH CYCLE.
     Route: 042
  4. OXALIPLATIN [Suspect]
     Dosage: OVER TWO HOURS
     Route: 042
  5. CAPECITABINE [Suspect]
     Dosage: ON DAYS 1-14,
     Route: 048

REACTIONS (14)
  - PALMAR-PLANTAR ERYTHRODYSAESTHESIA SYNDROME [None]
  - ARTERIAL THROMBOSIS [None]
  - VOMITING [None]
  - PERIPHERAL SENSORY NEUROPATHY [None]
  - ANAEMIA [None]
  - HYPOMAGNESAEMIA [None]
  - RASH [None]
  - THROMBOCYTOPENIA [None]
  - INTESTINAL PERFORATION [None]
  - DIARRHOEA [None]
  - FATIGUE [None]
  - HYPERSENSITIVITY [None]
  - PARONYCHIA [None]
  - EMBOLISM VENOUS [None]
